FAERS Safety Report 8239499-1 (Version None)
Quarter: 2012Q1

REPORT INFORMATION
  Report Type: 
  Country: None (occurrence: None)
  Receive Date: 20120328
  Receipt Date: 20120323
  Transmission Date: 20120608
  Serious: No
  Sender: FDA-Public Use
  Company Number: US-PFIZER INC-2012076094

PATIENT
  Sex: Female
  Weight: 54.422 kg

DRUGS (3)
  1. CELEBREX [Suspect]
     Dosage: 200 MG, 1X/DAY
     Route: 048
     Dates: start: 20110101, end: 20110101
  2. CELEBREX [Suspect]
     Dosage: 200 MG, 1X/DAY
     Route: 048
     Dates: start: 20120101
  3. CELEBREX [Suspect]
     Indication: BACK PAIN
     Dosage: 200 MG, 3X/DAY
     Route: 048
     Dates: start: 20110101, end: 20110101

REACTIONS (4)
  - URTICARIA [None]
  - GASTRIC DISORDER [None]
  - HYPERSENSITIVITY [None]
  - PRURITUS [None]
